FAERS Safety Report 5232380-1 (Version None)
Quarter: 2007Q1

REPORT INFORMATION
  Report Type: 
  Country: None (occurrence: None)
  Receive Date: 20070207
  Receipt Date: 20070131
  Transmission Date: 20070707
  Serious: Yes (Other)
  Sender: FDA-Public Use
  Company Number: PHEH2007US01523

PATIENT
  Age: 61 Year
  Sex: Female

DRUGS (2)
  1. MIACALCIN [Suspect]
     Indication: OSTEOPENIA
     Dosage: 1 SPRAY,  QD
     Route: 045
     Dates: start: 20061101
  2. BONIVA [Suspect]

REACTIONS (2)
  - BONE PAIN [None]
  - FOOT FRACTURE [None]
